FAERS Safety Report 4712449-8 (Version None)
Quarter: 2005Q3

REPORT INFORMATION
  Report Type: 
  Country: None (occurrence: None)
  Receive Date: 20050711
  Receipt Date: 20050628
  Transmission Date: 20060218
  Serious: Yes (Other)
  Sender: FDA-Public Use
  Company Number: 2005093532

PATIENT
  Age: 63 Year
  Sex: Female

DRUGS (3)
  1. UROBIOTIC [Suspect]
     Indication: DYSURIA
     Dosage: 300 MG (100 MG, 3 IN 1 D)
  2. RANITIDINE [Concomitant]
  3. ALPRAZOLAM [Concomitant]

REACTIONS (19)
  - ABDOMINAL TENDERNESS [None]
  - ANAEMIA [None]
  - ANISOCYTOSIS [None]
  - BLOOD METHAEMOGLOBIN PRESENT [None]
  - CONSTIPATION [None]
  - CYANOSIS [None]
  - DIZZINESS [None]
  - DYSPNOEA EXERTIONAL [None]
  - EOSINOPHILIA [None]
  - EPIGASTRIC DISCOMFORT [None]
  - FATIGUE [None]
  - HAEMOLYSIS [None]
  - HAPTOGLOBIN DECREASED [None]
  - HEART RATE INCREASED [None]
  - OXYGEN SATURATION DECREASED [None]
  - PO2 DECREASED [None]
  - POLYCHROMASIA [None]
  - SOMNOLENCE [None]
  - SULPHAEMOGLOBINAEMIA [None]
